FAERS Safety Report 23832357 (Version 1)
Quarter: 2024Q2

REPORT INFORMATION
  Report Type: Spontaneous
  Country: US (occurrence: US)
  Receive Date: 20240508
  Receipt Date: 20240508
  Transmission Date: 20240715
  Serious: Yes (Other)
  Sender: FDA-Public Use
  Company Number: US-MYLANLABS-2024M1038765

PATIENT
  Age: 75 Year
  Sex: Female

DRUGS (4)
  1. CYCLOSPORINE [Suspect]
     Active Substance: CYCLOSPORINE
     Indication: Dry eye
     Dosage: UNK; IN BOTH EYES; DROPS
     Route: 061
  2. TOZINAMERAN [Suspect]
     Active Substance: TOZINAMERAN
     Indication: COVID-19 immunisation
     Dosage: UNK; BOOSTER DOSE
     Route: 065
  3. LOTEPREDNOL [Suspect]
     Active Substance: LOTEPREDNOL
     Indication: Dry eye
     Dosage: UNK; IN BOTH EYES, DROPS
     Route: 061
  4. LATANOPROST [Concomitant]
     Active Substance: LATANOPROST
     Indication: Uveitic glaucoma
     Dosage: UNK
     Route: 065

REACTIONS (2)
  - Kaposi^s sarcoma classical type [Recovered/Resolved]
  - Conjunctival neoplasm [Recovered/Resolved]
